FAERS Safety Report 4502020-5 (Version None)
Quarter: 2004Q4

REPORT INFORMATION
  Report Type: 
  Country: None (occurrence: None)
  Receive Date: 20041109
  Receipt Date: 20041022
  Transmission Date: 20050328
  Serious: Yes (Hospitalization)
  Sender: FDA-Public Use
  Company Number: DSA_25031_2004

PATIENT
  Age: 45 Year
  Sex: Female

DRUGS (2)
  1. TAVOR [Suspect]
     Dosage: 24 MG ONCE PO
     Route: 048
     Dates: start: 20040918, end: 20040918
  2. BEER [Suspect]
     Dosage: 1.5 L ONCE PO
     Route: 048
     Dates: start: 20040918, end: 20040918

REACTIONS (5)
  - ALCOHOL USE [None]
  - FATIGUE [None]
  - INTENTIONAL OVERDOSE [None]
  - NAUSEA [None]
  - VOMITING [None]
